FAERS Safety Report 5450835-1 (Version None)
Quarter: 2007Q3

REPORT INFORMATION
  Report Type: 
  Country: None (occurrence: None)
  Receive Date: 20070913
  Receipt Date: 20070910
  Transmission Date: 20080115
  Serious: Yes (Other)
  Sender: FDA-Public Use
  Company Number: PHEH2007US12105

PATIENT
  Sex: Male

DRUGS (1)
  1. DIOVAN [Suspect]
     Dosage: 160MG, UNK
     Dates: start: 20070801

REACTIONS (5)
  - DIZZINESS [None]
  - NOCTURIA [None]
  - URINARY RETENTION [None]
  - URINE FLOW DECREASED [None]
  - URINE OUTPUT DECREASED [None]
